FAERS Safety Report 13477887 (Version 3)
Quarter: 2017Q2

REPORT INFORMATION
  Report Type: Spontaneous
  Country: CN (occurrence: CN)
  Receive Date: 20170425
  Receipt Date: 20170523
  Transmission Date: 20170830
  Serious: Yes (Other)
  Sender: FDA-Public Use
  Company Number: CN-PFIZER INC-2017177795

PATIENT
  Age: 83 Year
  Sex: Female

DRUGS (8)
  1. AMIODARONE [Suspect]
     Active Substance: AMIODARONE
     Dosage: 150 MG, DAILY
     Route: 042
     Dates: start: 20150508, end: 20150508
  2. AMIODARONE HCL [Suspect]
     Active Substance: AMIODARONE HYDROCHLORIDE
     Indication: ATRIAL FIBRILLATION
     Dosage: 0.2 G, 3X/DAY
     Route: 048
     Dates: start: 20150520, end: 20150523
  3. AMIODARONE [Suspect]
     Active Substance: AMIODARONE
     Dosage: 450 MG IN 216 ML OF 5% GLUCOSE SOLUTION
     Route: 042
     Dates: start: 20150421, end: 20150421
  4. AMIODARONE [Suspect]
     Active Substance: AMIODARONE
     Dosage: 75 MG, (75 MG IN 20 ML OF 5% GLUCOSE SOLUTION)
     Route: 042
     Dates: start: 20150512, end: 20150520
  5. AMIODARONE [Suspect]
     Active Substance: AMIODARONE
     Dosage: 2 MG/ML AT A RATE OF 0.25 ML/MIN OVER 24 HOURS VIA THE SAME VEIN)
     Route: 042
  6. AMIODARONE [Suspect]
     Active Substance: AMIODARONE
     Dosage: 2 MG/ML, UNK,BY VENOUS PUMP VIA HER LEFT + RIGHT LOWER EXTREMITY DORSAL VEINS FOR 4 AND 3 DAYS
     Route: 042
  7. AMIODARONE [Suspect]
     Active Substance: AMIODARONE
     Dosage: 450 MG, (450 MG IN 216 ML OF 5% GLUCOSE SOLUTION) VIA A VEIN IN THE ARM AT 60 MG/HOUR)
     Route: 042
     Dates: start: 20150508, end: 20150508
  8. AMIODARONE [Suspect]
     Active Substance: AMIODARONE
     Indication: ATRIAL FIBRILLATION
     Dosage: 150 MG, DAILY,IN 100 ML 5% GLUCOSE SOLUTION OVER 10 MINUTES)
     Route: 042
     Dates: start: 20150421, end: 20150421

REACTIONS (5)
  - Injection site erythema [Unknown]
  - Injection site ulcer [Recovered/Resolved]
  - Injection site swelling [Unknown]
  - Injection site pain [Unknown]
  - Injection site vesicles [Unknown]

NARRATIVE: CASE EVENT DATE: 20150515
